FAERS Safety Report 7936844 (Version 2)
Quarter: 2013Q2

REPORT INFORMATION
  Report Type: Spontaneous
  Country: US (occurrence: US)
  Receive Date: 20110509
  Receipt Date: 20130522
  Transmission Date: 20140414
  Serious: Yes (Other)
  Sender: FDA-Public Use
  Company Number: US-ASTRAZENECA-2011SE24924

PATIENT
  Age: 58 Year
  Sex: Male

DRUGS (12)
  1. NEXIUM [Suspect]
     Route: 048
  2. ADVAIR [Concomitant]
  3. SPIRIVA [Concomitant]
  4. ALBUTEROL [Concomitant]
     Dosage: PRN
  5. L-THYROXINE [Concomitant]
  6. COZAAR [Concomitant]
  7. LIPITOR [Concomitant]
  8. FLOMAX [Concomitant]
  9. LASIX [Concomitant]
  10. OXYCONTIN [Concomitant]
  11. OXYCODONE [Concomitant]
     Dosage: PRN
  12. ASPIRIN [Concomitant]

REACTIONS (10)
  - Chronic obstructive pulmonary disease [Unknown]
  - Sleep apnoea syndrome [Unknown]
  - Chronic respiratory failure [Unknown]
  - Hypertension [Unknown]
  - Hypercholesterolaemia [Unknown]
  - Disturbance in attention [Recovered/Resolved]
  - Cellulitis [Unknown]
  - Adverse event [Unknown]
  - Gastrooesophageal reflux disease [Unknown]
  - Oedema peripheral [Recovering/Resolving]
